FAERS Safety Report 4315937-1 (Version None)
Quarter: 2004Q1

REPORT INFORMATION
  Report Type: 
  Country: None (occurrence: None)
  Receive Date: 20040310
  Receipt Date: 20040227
  Transmission Date: 20041129
  Serious: Yes (Death, Hospitalization, Other)
  Sender: FDA-Public Use
  Company Number: JP-JNJFOC-20040104956

PATIENT
  Age: 24 Year
  Sex: Male

DRUGS (10)
  1. RISPERDAL [Suspect]
     Indication: PSYCHOTIC DISORDER
     Dosage: SEE IMAGE
     Route: 048
     Dates: end: 20031204
  2. RISPERDAL [Suspect]
     Indication: PSYCHOTIC DISORDER
     Dosage: SEE IMAGE
     Route: 048
     Dates: start: 20031205, end: 20040104
  3. RISPERDAL [Suspect]
     Indication: PSYCHOTIC DISORDER
     Dosage: SEE IMAGE
     Route: 048
     Dates: start: 20040105, end: 20040106
  4. LITHIUM CARBONATE [Suspect]
     Indication: PSYCHOTIC DISORDER
     Dosage: SEE IMAGE
     Route: 048
     Dates: end: 20031204
  5. LITHIUM CARBONATE [Suspect]
     Indication: PSYCHOTIC DISORDER
     Dosage: SEE IMAGE
     Route: 048
     Dates: start: 20031205, end: 20040104
  6. PSYCHOTROPIC AGENTS (ANTIPSYCHOTICS) [Concomitant]
  7. NITRAZEPAM [Concomitant]
  8. TRIHEXYPHENIDYL HCL [Concomitant]
  9. LEVOMEPROMAZINE MALEATE (LEVOMEPROMAZINE MALEATE) [Concomitant]
  10. FLUNITRAZEPAM (FLUNITRAZEPAM) [Concomitant]

REACTIONS (12)
  - ABULIA [None]
  - AUTISM [None]
  - CARDIAC ARREST [None]
  - CHROMATURIA [None]
  - DRUG INTERACTION [None]
  - DYSPHAGIA [None]
  - DYSTONIA [None]
  - FALL [None]
  - INJURY ASPHYXIATION [None]
  - INSOMNIA [None]
  - NEUROLEPTIC MALIGNANT SYNDROME [None]
  - TREMOR [None]
